FAERS Safety Report 8312644-5 (Version None)
Quarter: 2012Q2

REPORT INFORMATION
  Report Type: 
  Country: None (occurrence: None)
  Receive Date: 20120424
  Receipt Date: 20120410
  Transmission Date: 20120825
  Serious: Yes (Other)
  Sender: FDA-Public Use
  Company Number: FK201201108

PATIENT
  Age: 61 Year
  Sex: Male
  Weight: 49.6 kg

DRUGS (2)
  1. DOCETAXEL [Suspect]
     Indication: LUNG SQUAMOUS CELL CARCINOMA STAGE III
     Dosage: 60 MG/M2
  2. CISPLATIN [Suspect]
     Indication: LUNG SQUAMOUS CELL CARCINOMA STAGE III
     Dosage: 80 MG/M2

REACTIONS (10)
  - DECREASED APPETITE [None]
  - ABDOMINAL PAIN UPPER [None]
  - ABDOMINAL DISTENSION [None]
  - WEIGHT DECREASED [None]
  - GASTROINTESTINAL SOUNDS ABNORMAL [None]
  - DUODENAL OBSTRUCTION [None]
  - NAUSEA [None]
  - SUPERIOR MESENTERIC ARTERY SYNDROME [None]
  - VOMITING [None]
  - FLATULENCE [None]
